FAERS Safety Report 6058056-9 (Version None)
Quarter: 2009Q1

REPORT INFORMATION
  Report Type: 
  Country: None (occurrence: None)
  Receive Date: 20090127
  Receipt Date: 20090112
  Transmission Date: 20090719
  Serious: Yes (Hospitalization)
  Sender: FDA-Public Use
  Company Number: 230327K09USA

PATIENT
  Age: 17 Year
  Sex: Female

DRUGS (1)
  1. REBIF [Suspect]
     Indication: OFF LABEL USE
     Dosage: 44 MCG, 3 IN 1 WEEKS, SUBCUTANEOUS
     Route: 058
     Dates: start: 20081202

REACTIONS (4)
  - COGNITIVE DISORDER [None]
  - DIZZINESS [None]
  - OFF LABEL USE [None]
  - READING DISORDER [None]
